FAERS Safety Report 9143551 (Version 1)
Quarter: 2013Q1

REPORT INFORMATION
  Report Type: Spontaneous
  Country: US (occurrence: US)
  Receive Date: 20130306
  Receipt Date: 20130306
  Transmission Date: 20140127
  Serious: Yes (Other)
  Sender: FDA-Public Use
  Company Number: US-BAYER-2013-027447

PATIENT
  Age: 26 Year
  Sex: Female

DRUGS (2)
  1. MIRENA [Suspect]
     Indication: CONTRACEPTION
     Dosage: 20 MCG/24HR, CONT
     Route: 015
     Dates: start: 201001, end: 20130207
  2. MIRENA [Suspect]
     Indication: CONTRACEPTION
     Dosage: 20 MCG/24HR, CONT
     Route: 015
     Dates: start: 200712, end: 200912

REACTIONS (8)
  - Grand mal convulsion [None]
  - Amnesia [None]
  - Grand mal convulsion [None]
  - Seizure cluster [None]
  - Amenorrhoea [None]
  - Unintentional medical device removal [None]
  - Hypomenorrhoea [None]
  - Agnosia [None]
